FAERS Safety Report 10300418 (Version 1)
Quarter: 2014Q3

REPORT INFORMATION
  Report Type: Report from Study
  Country: US (occurrence: US)
  Receive Date: 20140713
  Receipt Date: 20140713
  Transmission Date: 20150326
  Serious: Yes (Other)
  Sender: FDA-Public Use
  Company Number: PHEH2014US013704

PATIENT
  Sex: Female

DRUGS (5)
  1. GILENYA [Suspect]
     Active Substance: FINGOLIMOD HYDROCHLORIDE
     Indication: MULTIPLE SCLEROSIS
     Dosage: 0.5 MG, QD
     Route: 048
     Dates: start: 20120309, end: 201401
  2. EFFEXOR XR [Concomitant]
     Active Substance: VENLAFAXINE HYDROCHLORIDE
  3. LYRICA [Concomitant]
     Active Substance: PREGABALIN
  4. BACLOFEN. [Concomitant]
     Active Substance: BACLOFEN
  5. TIZANIDINE [Concomitant]
     Active Substance: TIZANIDINE

REACTIONS (12)
  - Muscular weakness [Unknown]
  - Multiple sclerosis relapse [Unknown]
  - Muscle spasms [Unknown]
  - Urinary incontinence [Unknown]
  - Fatigue [Unknown]
  - Intervertebral disc space narrowing [Unknown]
  - Pain in extremity [Unknown]
  - Muscle spasticity [Unknown]
  - Cerebral atrophy [Unknown]
  - Pain [Unknown]
  - Nuclear magnetic resonance imaging abnormal [Unknown]
  - Haemangioma of bone [Unknown]
